FAERS Safety Report 16042553 (Version 2)
Quarter: 2019Q2

REPORT INFORMATION
  Report Type: Report from Study
  Country: None (occurrence: US)
  Receive Date: 20190306
  Receipt Date: 20190418
  Transmission Date: 20190711
  Serious: Yes (Other)
  Sender: FDA-Public Use
  Company Number: US-ABBVIE-19K-163-2687958-00

PATIENT
  Age: 37 Year
  Sex: Female
  Weight: 93.07 kg

DRUGS (11)
  1. LINZESS [Concomitant]
     Active Substance: LINACLOTIDE
     Indication: ABDOMINAL PAIN
  2. HUMIRA [Suspect]
     Active Substance: ADALIMUMAB
     Indication: ANKYLOSING SPONDYLITIS
     Route: 058
     Dates: start: 20180723
  3. SPIRIVA [Concomitant]
     Active Substance: TIOTROPIUM BROMIDE MONOHYDRATE
     Indication: ASTHMA
  4. FOLIC ACID. [Concomitant]
     Active Substance: FOLIC ACID
     Indication: ANKYLOSING SPONDYLITIS
  5. DULOXETINE. [Concomitant]
     Active Substance: DULOXETINE
     Indication: DEPRESSION
  6. LINZESS [Concomitant]
     Active Substance: LINACLOTIDE
     Indication: CONSTIPATION
  7. DEXILANT [Concomitant]
     Active Substance: DEXLANSOPRAZOLE
     Indication: CONSTIPATION
  8. CLONAZEPAM. [Concomitant]
     Active Substance: CLONAZEPAM
     Indication: ANXIETY
  9. ALBUTEROL. [Concomitant]
     Active Substance: ALBUTEROL
     Indication: ASTHMA
  10. DEXILANT [Concomitant]
     Active Substance: DEXLANSOPRAZOLE
     Indication: ABDOMINAL PAIN
  11. LORZONE [Concomitant]
     Active Substance: CHLORZOXAZONE
     Indication: ANKYLOSING SPONDYLITIS

REACTIONS (4)
  - Cervical dysplasia [Not Recovered/Not Resolved]
  - Rotator cuff syndrome [Not Recovered/Not Resolved]
  - Musculoskeletal pain [Not Recovered/Not Resolved]
  - Nephrolithiasis [Not Recovered/Not Resolved]

NARRATIVE: CASE EVENT DATE: 201901
